FAERS Safety Report 9906734 (Version 2)
Quarter: 2014Q1

REPORT INFORMATION
  Report Type: Spontaneous
  Country: US (occurrence: US)
  Receive Date: 20140218
  Receipt Date: 20140218
  Transmission Date: 20141002
  Serious: Yes (Death, Hospitalization, Other)
  Sender: FDA-Public Use
  Company Number: US-ELI_LILLY_AND_COMPANY-US201401002723

PATIENT
  Age: 79 Year
  Sex: Male
  Weight: 158.7 kg

DRUGS (2)
  1. INSULIN HUMAN [Suspect]
     Indication: DIABETES MELLITUS
     Route: 065
  2. GABAPENTIN [Concomitant]

REACTIONS (6)
  - Metabolic encephalopathy [Fatal]
  - Hypoglycaemic unconsciousness [Fatal]
  - Fall [Unknown]
  - Compression fracture [Unknown]
  - Spinal fracture [Unknown]
  - Incorrect dose administered [Unknown]
